FAERS Safety Report 7464667-6 (Version None)
Quarter: 2011Q2

REPORT INFORMATION
  Report Type: 
  Country: None (occurrence: None)
  Receive Date: 20110509
  Receipt Date: 20101208
  Transmission Date: 20111010
  Serious: Yes (Other)
  Sender: FDA-Public Use
  Company Number: US-BAYER-201038184NA

PATIENT
  Age: 32 Year
  Sex: Female
  Weight: 108.84 kg

DRUGS (1)
  1. YASMIN [Suspect]
     Indication: PRODUCT USED FOR UNKNOWN INDICATION
     Dosage: UNK
     Route: 048
     Dates: start: 20070201, end: 20070401

REACTIONS (4)
  - CEREBROVASCULAR ACCIDENT [None]
  - BLINDNESS [None]
  - HEADACHE [None]
  - HEMIANOPIA [None]
